FAERS Safety Report 24317104 (Version 1)
Quarter: 2024Q3

REPORT INFORMATION
  Report Type: Spontaneous
  Country: DE (occurrence: DE)
  Receive Date: 20240913
  Receipt Date: 20240913
  Transmission Date: 20241016
  Serious: No
  Sender: PFIZER
  Company Number: DE-PFIZER INC-202400253607

PATIENT
  Age: 8 Year
  Sex: Male
  Weight: 25 kg

DRUGS (1)
  1. ENBREL [Suspect]
     Active Substance: ETANERCEPT
     Dosage: 25 MG, SINGLE

REACTIONS (1)
  - Injection site pain [Unknown]
